FAERS Safety Report 4930166-6 (Version None)
Quarter: 2006Q1

REPORT INFORMATION
  Report Type: 
  Country: None (occurrence: None)
  Receive Date: 20060224
  Receipt Date: 20060215
  Transmission Date: 20060701
  Serious: Yes (Hospitalization)
  Sender: FDA-Public Use
  Company Number: 2006BI002663

PATIENT
  Age: 62 Year
  Sex: Female
  Weight: 108.4097 kg

DRUGS (6)
  1. AVONEX [Suspect]
     Indication: MULTIPLE SCLEROSIS
     Dosage: 30 UG;QW; IM
     Route: 030
     Dates: start: 20030101
  2. NEURONTIN [Concomitant]
  3. PROZAC [Concomitant]
  4. PREMARIN [Concomitant]
  5. SANCTURA [Concomitant]
  6. TOPROL [Concomitant]

REACTIONS (2)
  - CELLULITIS [None]
  - GASTRIC PH DECREASED [None]
